FAERS Safety Report 7686944-6 (Version None)
Quarter: 2011Q3

REPORT INFORMATION
  Report Type: 
  Country: None (occurrence: None)
  Receive Date: 20110816
  Receipt Date: 20110811
  Transmission Date: 20111222
  Serious: Yes (Hospitalization, Other)
  Sender: FDA-Public Use
  Company Number: US-ABBOTT-11P-163-0845509-00

PATIENT
  Sex: Male

DRUGS (2)
  1. HUMIRA [Suspect]
     Indication: PSORIASIS
     Route: 058
     Dates: start: 20090101, end: 20110701
  2. CARBATROL [Concomitant]
     Indication: EPILEPSY

REACTIONS (4)
  - HEREDITARY CEREBRAL DEGENERATION [None]
  - CHEST PAIN [None]
  - HEADACHE [None]
  - VISION BLURRED [None]
